FAERS Safety Report 5474625-9 (Version None)
Quarter: 2007Q4

REPORT INFORMATION
  Report Type: 
  Country: None (occurrence: None)
  Receive Date: 20071002
  Receipt Date: 20070921
  Transmission Date: 20080405
  Serious: Yes (Hospitalization)
  Sender: FDA-Public Use
  Company Number: US-GENENTECH-248323

PATIENT
  Age: 52 Year
  Sex: Male

DRUGS (4)
  1. AVASTIN [Suspect]
     Indication: RECTAL CANCER
     Dosage: UNK, UNK
  2. FOLINIC ACID [Concomitant]
     Indication: RECTAL CANCER
  3. FLUOROURACIL [Concomitant]
     Indication: RECTAL CANCER
  4. OXALIPLATIN [Concomitant]
     Indication: RECTAL CANCER

REACTIONS (3)
  - ABDOMINAL PAIN UPPER [None]
  - AUTOIMMUNE THROMBOCYTOPENIA [None]
  - MYOCARDIAL INFARCTION [None]
